FAERS Safety Report 8720838 (Version 2)
Quarter: 2012Q4

REPORT INFORMATION
  Report Type: Report from Study
  Country: US (occurrence: US)
  Receive Date: 20120813
  Receipt Date: 20121011
  Transmission Date: 20130627
  Serious: Yes (Other)
  Sender: FDA-Public Use
  Company Number: US-ROCHE-769761

PATIENT
  Age: 66 Year
  Sex: Female
  Weight: 84.6 kg

DRUGS (6)
  1. VISMODEGIB [Suspect]
     Indication: SMALL CELL LUNG CANCER STAGE UNSPECIFIED
     Dosage: last dose administered on 03/01/2011
     Route: 048
  2. VISMODEGIB [Suspect]
     Dosage: LAST DOSE ON 01/MAR/2011
     Route: 048
  3. ETOPOSIDE [Suspect]
     Indication: SMALL CELL LUNG CANCER STAGE UNSPECIFIED
     Dosage: 100 mg/m2, QDX3D/21DC
     Route: 042
     Dates: start: 20101210, end: 20101231
  4. ETOPOSIDE [Suspect]
     Dosage: 100 mg/m2, QDX3D/21DC
     Route: 042
  5. CISPLATIN [Suspect]
     Indication: SMALL CELL LUNG CANCER STAGE UNSPECIFIED
     Dosage: 75 MG/M2, Q21D
     Route: 042
     Dates: start: 20101210, end: 20101229
  6. CISPLATIN [Suspect]
     Dosage: 75 MG/M2, Q21D
     Route: 042

REACTIONS (7)
  - Anaemia [Recovering/Resolving]
  - Weight decreased [Recovering/Resolving]
  - Nausea [Recovering/Resolving]
  - Alopecia [Recovering/Resolving]
  - Asthenia [Recovering/Resolving]
  - Fatigue [Recovering/Resolving]
  - Platelet count decreased [Recovering/Resolving]
